FAERS Safety Report 6858363-3 (Version None)
Quarter: 2010Q3

REPORT INFORMATION
  Report Type: 
  Country: None (occurrence: None)
  Receive Date: 20100719
  Receipt Date: 20100609
  Transmission Date: 20110219
  Serious: Yes (Hospitalization)
  Sender: FDA-Public Use
  Company Number: US-GILEAD-2010-0029729

PATIENT
  Sex: Female
  Weight: 62.652 kg

DRUGS (13)
  1. LETAIRIS [Suspect]
     Indication: PULMONARY ARTERIAL HYPERTENSION
     Route: 048
     Dates: start: 20091120
  2. TYVASO [Concomitant]
  3. LASIX [Concomitant]
  4. DIOVAN [Concomitant]
  5. SPIRONOLACTONE [Concomitant]
  6. CADUET [Concomitant]
  7. ASPIRIN [Concomitant]
  8. PLAVIX [Concomitant]
  9. LUNESTA [Concomitant]
  10. NEXIUM [Concomitant]
  11. RANITIDINE [Concomitant]
  12. IRON SULFATETHIAMIN COMPOUND TAB [Concomitant]
  13. AMARYL [Concomitant]

REACTIONS (1)
  - BLOOD COUNT ABNORMAL [None]
